FAERS Safety Report 12763062 (Version 1)
Quarter: 2016Q3

REPORT INFORMATION
  Report Type: Spontaneous
  Country: IT (occurrence: IT)
  Receive Date: 20160920
  Receipt Date: 20160920
  Transmission Date: 20161109
  Serious: Yes (Hospitalization)
  Sender: FDA-Public Use
  Company Number: PHHY2016IT128904

PATIENT
  Age: 63 Year
  Sex: Female

DRUGS (6)
  1. INTERFERON BETA NOS [Concomitant]
     Active Substance: INTERFERON BETA
     Indication: PRODUCT USED FOR UNKNOWN INDICATION
     Route: 065
  2. LYRICA [Suspect]
     Active Substance: PREGABALIN
     Indication: TRIGEMINAL NEURALGIA
     Dosage: 375 MG, QD
     Route: 048
     Dates: start: 20160101, end: 20160503
  3. ULCEX [Concomitant]
     Indication: PRODUCT USED FOR UNKNOWN INDICATION
     Route: 065
  4. PALEXIA [Suspect]
     Active Substance: TAPENTADOL HYDROCHLORIDE
     Indication: TRIGEMINAL NEURALGIA
     Dosage: 200 MG, QD
     Route: 048
     Dates: start: 20160101, end: 20160503
  5. LIMBITRYL [Suspect]
     Active Substance: AMITRIPTYLINE HYDROCHLORIDE\CHLORDIAZEPOXIDE HYDROCHLORIDE
     Indication: TRIGEMINAL NEURALGIA
     Dosage: 1 DF, QD
     Route: 048
     Dates: start: 20160101, end: 20160503
  6. TOLEP [Suspect]
     Active Substance: OXCARBAZEPINE
     Indication: TRIGEMINAL NEURALGIA
     Dosage: 1800 MG, QD
     Route: 048
     Dates: start: 20160101, end: 20160503

REACTIONS (4)
  - Motor dysfunction [Recovering/Resolving]
  - Product use issue [Unknown]
  - Confusional state [Recovering/Resolving]
  - Asthenia [Recovering/Resolving]

NARRATIVE: CASE EVENT DATE: 20160301
